FAERS Safety Report 10009784 (Version 2)
Quarter: 2014Q1

REPORT INFORMATION
  Report Type: Spontaneous
  Country: US (occurrence: US)
  Receive Date: 20140312
  Receipt Date: 20140312
  Transmission Date: 20141002
  Serious: No
  Sender: FDA-Public Use
  Company Number: US-INCYTE CORPORATION-2012IN002406

PATIENT
  Age: 73 Year
  Sex: Female

DRUGS (3)
  1. JAKAFI [Suspect]
     Indication: MYELOFIBROSIS
     Dosage: 20 MG, QD
     Route: 048
  2. PROTONIX [Concomitant]
     Indication: GASTRIC DISORDER
  3. LATANOPROST [Concomitant]
     Route: 031

REACTIONS (5)
  - Nephrolithiasis [Unknown]
  - Glossodynia [Unknown]
  - Skin wrinkling [Unknown]
  - Dry skin [Unknown]
  - Urinary tract infection [Unknown]
